FAERS Safety Report 18297866 (Version 1)
Quarter: 2020Q3

REPORT INFORMATION
  Report Type: Spontaneous
  Country: US (occurrence: US)
  Receive Date: 20200922
  Receipt Date: 20200922
  Transmission Date: 20201103
  Serious: No
  Sender: FDA-Public Use
  Company Number: US-TEVA-2020-US-1830537

PATIENT
  Sex: Male

DRUGS (1)
  1. FENTANYL. [Suspect]
     Active Substance: FENTANYL
     Indication: SPINAL OPERATION
     Route: 065
     Dates: start: 2004, end: 2019

REACTIONS (4)
  - Overdose [Unknown]
  - Wheelchair user [Unknown]
  - Pain [Unknown]
  - Weight decreased [Unknown]
